FAERS Safety Report 9723264 (Version 1)
Quarter: 2013Q4

REPORT INFORMATION
  Report Type: Spontaneous
  Country: JP (occurrence: JP)
  Receive Date: 20131202
  Receipt Date: 20131202
  Transmission Date: 20140711
  Serious: Yes (Other)
  Sender: FDA-Public Use
  Company Number: JP-GILEAD-2013-0088752

PATIENT
  Age: 75 Year
  Sex: Male

DRUGS (6)
  1. HEPSERA [Suspect]
     Indication: CHRONIC HEPATITIS B
     Dosage: 10 MG, QD
     Route: 048
  2. ZEFIX /01221401/ [Suspect]
     Indication: CHRONIC HEPATITIS B
     Dosage: 100 MG, QD
     Route: 048
     Dates: start: 201104
  3. SELBEX [Concomitant]
     Route: 048
  4. KANAMYCIN [Concomitant]
     Route: 048
  5. MONILAC [Concomitant]
     Route: 048
  6. EQUA [Concomitant]
     Route: 048
     Dates: end: 20131012

REACTIONS (1)
  - Rhabdomyolysis [Not Recovered/Not Resolved]
